FAERS Safety Report 11309744 (Version 2)
Quarter: 2015Q3

REPORT INFORMATION
  Report Type: Report from Study
  Country: BR (occurrence: BR)
  Receive Date: 20150724
  Receipt Date: 20150911
  Transmission Date: 20151125
  Serious: Yes (Death, Hospitalization, Other)
  Sender: FDA-Public Use
  Company Number: BR-BAYER-2015-380733

PATIENT
  Age: 74 Year
  Sex: Female
  Weight: 120 kg

DRUGS (1)
  1. NEXAVAR [Suspect]
     Active Substance: SORAFENIB
     Indication: HEPATIC CANCER
     Dosage: 400 MG, BID
     Route: 048
     Dates: start: 20150420, end: 20150728

REACTIONS (19)
  - Hepatic cancer [Fatal]
  - Hepatic cirrhosis [Fatal]
  - Pneumonia [Recovered/Resolved]
  - Confusional state [Not Recovered/Not Resolved]
  - Peripheral swelling [Not Recovered/Not Resolved]
  - Weight decreased [Recovered/Resolved]
  - Abdominal distension [Not Recovered/Not Resolved]
  - Erythema [Not Recovered/Not Resolved]
  - Feeding disorder [Not Recovered/Not Resolved]
  - Fatigue [Recovered/Resolved]
  - Confusional state [Recovered/Resolved]
  - Weight increased [Not Recovered/Not Resolved]
  - Confusional state [Recovered/Resolved]
  - Pain in extremity [Not Recovered/Not Resolved]
  - Dyspnoea [Recovered/Resolved]
  - Neoplasm [Not Recovered/Not Resolved]
  - Painful defaecation [Recovered/Resolved]
  - Aphasia [Not Recovered/Not Resolved]
  - Fatigue [None]

NARRATIVE: CASE EVENT DATE: 201504
